FAERS Safety Report 7314818-9 (Version None)
Quarter: 2011Q1

REPORT INFORMATION
  Report Type: 
  Country: None (occurrence: None)
  Receive Date: 20110225
  Receipt Date: 20110103
  Transmission Date: 20110831
  Serious: No
  Sender: FDA-Public Use
  Company Number: US-MYLANLABS-2010S1023353

PATIENT
  Age: 17 Year
  Sex: Male
  Weight: 77 kg

DRUGS (2)
  1. AMNESTEEM [Suspect]
     Indication: ACNE
     Route: 048
     Dates: start: 20100928, end: 20101031
  2. AMNESTEEM [Suspect]
     Route: 048
     Dates: start: 20101101, end: 20101130

REACTIONS (1)
  - DISTURBANCE IN ATTENTION [None]
